FAERS Safety Report 20306018 (Version 1)
Quarter: 2022Q1

REPORT INFORMATION
  Report Type: Spontaneous
  Country: DE (occurrence: None)
  Receive Date: 20220106
  Receipt Date: 20220106
  Transmission Date: 20220423
  Serious: Yes (Death, Other)
  Sender: FDA-Public Use
  Company Number: 2022A002457

PATIENT
  Sex: Male

DRUGS (3)
  1. OLAPARIB [Suspect]
     Active Substance: OLAPARIB
     Route: 048
  2. NAB-PACLITAXEL / GEMCITABINE [Concomitant]
     Route: 065
  3. ERLOTINIB [Concomitant]
     Active Substance: ERLOTINIB
     Route: 065

REACTIONS (3)
  - Hepatic lesion [Unknown]
  - Metastases to peritoneum [Unknown]
  - Malignant neoplasm progression [Fatal]
